FAERS Safety Report 8308484-3 (Version None)
Quarter: 2012Q2

REPORT INFORMATION
  Report Type: 
  Country: None (occurrence: None)
  Receive Date: 20120419
  Receipt Date: 20120405
  Transmission Date: 20120825
  Serious: Yes (Other)
  Sender: FDA-Public Use
  Company Number: NGX_00923_2012

PATIENT
  Sex: Female

DRUGS (8)
  1. OXYCONTIN [Concomitant]
  2. EFFEXOR [Concomitant]
  3. PRAZEPAM [Concomitant]
  4. TEMAZEPAM [Concomitant]
  5. QUTENZA [Suspect]
     Indication: NEURALGIA
     Dosage: (1.5 DF, [PATCH, APPLIED ON HER WRIST] TOPICAL)
     Route: 061
     Dates: start: 20120216, end: 20120216
  6. QUTENZA [Suspect]
     Indication: ALLODYNIA
     Dosage: (1.5 DF, [PATCH, APPLIED ON HER WRIST] TOPICAL)
     Route: 061
     Dates: start: 20120216, end: 20120216
  7. EBASTINE [Concomitant]
  8. ZOLPIDEM TARTRATE [Concomitant]

REACTIONS (7)
  - APPLICATION SITE VESICLES [None]
  - ERYTHEMA [None]
  - APPLICATION SITE PAIN [None]
  - APPLICATION SITE PAPULES [None]
  - APPLICATION SITE BURN [None]
  - APPLICATION SITE PRURITUS [None]
  - BURNS SECOND DEGREE [None]
